FAERS Safety Report 9020115 (Version 1)
Quarter: 2013Q1

REPORT INFORMATION
  Report Type: Spontaneous
  Country: None (occurrence: US)
  Receive Date: 20130119
  Receipt Date: 20130119
  Transmission Date: 20140127
  Serious: No
  Sender: FDA-Public Use
  Company Number: US-ALLERGAN-1210809US

PATIENT
  Age: 33 Year
  Sex: Female

DRUGS (2)
  1. BOTOX? [Suspect]
     Indication: MIGRAINE
     Dosage: UNK, SINGLE
     Route: 030
     Dates: start: 20120724, end: 20120724
  2. ADVIL [Concomitant]
     Indication: HEADACHE

REACTIONS (9)
  - Lymphadenopathy [Recovered/Resolved]
  - Drug administration error [Unknown]
  - Influenza like illness [Recovered/Resolved]
  - Pyrexia [Recovered/Resolved]
  - Lymphadenopathy [Recovered/Resolved]
  - Oropharyngeal pain [Recovered/Resolved]
  - Dizziness [Recovered/Resolved]
  - Skin tightness [Unknown]
  - Headache [Not Recovered/Not Resolved]
